FAERS Safety Report 13634688 (Version 1)
Quarter: 2017Q2

REPORT INFORMATION
  Report Type: Spontaneous
  Country: JP (occurrence: JP)
  Receive Date: 20170609
  Receipt Date: 20170609
  Transmission Date: 20170830
  Serious: Yes (Hospitalization)
  Sender: FDA-Public Use
  Company Number: JP-BAXTER-2016BAX063387

PATIENT
  Age: 15 Year
  Sex: Male

DRUGS (6)
  1. UROMITEXAN 400 MG [Suspect]
     Active Substance: MESNA
     Indication: PRODUCT USED FOR UNKNOWN INDICATION
     Route: 065
  2. COSMEGEN [Suspect]
     Active Substance: DACTINOMYCIN
     Indication: EWING^S SARCOMA
     Dosage: AT 10:00AM
     Route: 042
     Dates: start: 20161206, end: 20161206
  3. GRANISETRON [Suspect]
     Active Substance: GRANISETRON
     Indication: PROPHYLAXIS
     Dosage: AT 10:00AM AS SUPPORTIVE THERAPY
     Route: 042
     Dates: start: 20161206, end: 20161206
  4. PROEMEND [Suspect]
     Active Substance: FOSAPREPITANT
     Indication: PROPHYLAXIS
     Dosage: AT 09:30AM, SPENDING 30 MINUTES AS SUPPORTIVE THERAPY
     Route: 041
     Dates: start: 20161206, end: 20161206
  5. IFOSFAMIDE FOR INJECTION [Suspect]
     Active Substance: IFOSFAMIDE
     Indication: EWING^S SARCOMA
     Dosage: AT 11:00 AM, SPENDING AN HOUR
     Route: 042
     Dates: start: 20161206, end: 20161206
  6. ONCOVIN [Suspect]
     Active Substance: VINCRISTINE SULFATE
     Indication: EWING^S SARCOMA
     Dosage: AT 10:00 AM
     Route: 042
     Dates: start: 20161206, end: 20161206

REACTIONS (1)
  - Status epilepticus [Recovered/Resolved]

NARRATIVE: CASE EVENT DATE: 20161206
